FAERS Safety Report 15379549 (Version 1)
Quarter: 2018Q3

REPORT INFORMATION
  Report Type: Spontaneous
  Country: US (occurrence: US)
  Receive Date: 20180913
  Receipt Date: 20180913
  Transmission Date: 20181010
  Serious: Yes (Hospitalization, Other)
  Sender: FDA-Public Use
  Company Number: US-SA-2018SA252307

PATIENT
  Age: 27 Year
  Sex: Female

DRUGS (1)
  1. ENOXAPARIN SODIUM. [Suspect]
     Active Substance: ENOXAPARIN SODIUM
     Indication: EMBOLISM
     Dosage: 50 MG, QD

REACTIONS (11)
  - Erythema multiforme [Recovered/Resolved]
  - Disease progression [Recovered/Resolved]
  - Condition aggravated [Recovered/Resolved]
  - Drug eruption [Recovered/Resolved]
  - Rash papular [Recovered/Resolved]
  - Macule [Recovered/Resolved]
  - Papule [Recovered/Resolved]
  - Herpes gestationis [Recovered/Resolved]
  - Epidermal necrosis [Recovered/Resolved]
  - Polymorphic eruption of pregnancy [Recovered/Resolved]
  - Rash pruritic [Recovered/Resolved]
